FAERS Safety Report 24054255 (Version 2)
Quarter: 2024Q3

REPORT INFORMATION
  Report Type: Spontaneous
  Country: GB (occurrence: GB)
  Receive Date: 20240705
  Receipt Date: 20240819
  Transmission Date: 20241017
  Serious: Yes (Disabling)
  Sender: AUROBINDO
  Company Number: GB-MHRA-TPP36064774C23315082YC1719488124401

PATIENT
  Age: 89 Year
  Sex: Female
  Weight: 55 kg

DRUGS (15)
  1. MEMANTINE HYDROCHLORIDE [Suspect]
     Active Substance: MEMANTINE HYDROCHLORIDE
     Indication: Ill-defined disorder
     Dosage: 10 MILLIGRAM, ONCE A DAY(EACH NIGHT TIME (FOR MEMORY) (WHITE )
     Route: 065
     Dates: start: 20231127
  2. MEMANTINE HYDROCHLORIDE [Suspect]
     Active Substance: MEMANTINE HYDROCHLORIDE
     Indication: Amnesia
  3. AMITRIPTYLINE [Suspect]
     Active Substance: AMITRIPTYLINE
     Indication: Ill-defined disorder
     Dosage: 2 DOSAGE FORM, ONCE A DAY(TAKE TWO TABLETS AT NIGHT AS DIRECTED (BLUE ROU...)
     Route: 065
     Dates: start: 20220516
  4. PRIMIDONE [Suspect]
     Active Substance: PRIMIDONE
     Indication: Ill-defined disorder
     Dosage: 5 DOSAGE FORM, ONCE A DAY WEEK 1 AND 2: HALF A TABLET EACH DAY WEEK 3 A...
     Route: 065
     Dates: start: 20240416, end: 20240627
  5. AMLODIPINE [Concomitant]
     Active Substance: AMLODIPINE BESYLATE
     Indication: Ill-defined disorder
     Dosage: 1 DOSAGE FORM, ONCE A DAY (TO LOWER BLOOD PRESSURE)(WHITE)
     Route: 065
     Dates: start: 20240120
  6. AMLODIPINE [Concomitant]
     Active Substance: AMLODIPINE BESYLATE
     Indication: Blood pressure increased
  7. DIHYDROCODEINE [Concomitant]
     Active Substance: DIHYDROCODEINE
     Indication: Ill-defined disorder
     Dosage: UNK(ONE OR TWO AT NIGHT (WHITE CAPSULE SHAPED DHC 6...)
     Route: 065
     Dates: start: 20220516
  8. DAPAGLIFLOZIN [Concomitant]
     Active Substance: DAPAGLIFLOZIN
     Indication: Ill-defined disorder
     Dosage: 1 DOSAGE FORM, ONCE A DAY(TO EXCRETE GLUCOSE IN URINE)
     Route: 065
     Dates: start: 20230928
  9. DAPAGLIFLOZIN [Concomitant]
     Active Substance: DAPAGLIFLOZIN
     Indication: Glucose urine
  10. POTASSIUM BICARBONATE\SODIUM ALGINATE [Concomitant]
     Active Substance: POTASSIUM BICARBONATE\SODIUM ALGINATE
     Indication: Ill-defined disorder
     Dosage: 1 DOSAGE FORM, ONCE A DAY(WHEN REQUIRED)
     Route: 065
     Dates: start: 20220809
  11. POLYETHYLENE GLYCOL 3350\POTASSIUM CHLORIDE\SODIUM BICARBONATE\SODIUM [Concomitant]
     Active Substance: POLYETHYLENE GLYCOL 3350\POTASSIUM CHLORIDE\SODIUM BICARBONATE\SODIUM CHLORIDE
     Indication: Ill-defined disorder
     Dosage: UNK(ONE OR TWO DAILY, ORANGE)
     Route: 065
     Dates: start: 20220516
  12. LEVOTHYROXINE [Concomitant]
     Active Substance: LEVOTHYROXINE\LEVOTHYROXINE SODIUM
     Indication: Ill-defined disorder
     Dosage: 75 MICROGRAM, ONCE A DAY(TAKE ONE TABLET EACH DAY (TOTAL 75MCG) (WHITE R...)
     Route: 065
     Dates: start: 20220516
  13. METFORMIN [Concomitant]
     Active Substance: METFORMIN HYDROCHLORIDE
     Indication: Ill-defined disorder
     Dosage: 1 DOSAGE FORM, DAILY(WITH BREAKFAST AND ONE WITH EV.ENING)
     Route: 065
     Dates: start: 20220516
  14. Movelat [Concomitant]
     Indication: Ill-defined disorder
     Dosage: UNK(APPLY AS REQUIRED)
     Route: 065
     Dates: start: 20220516
  15. ACETAMINOPHEN [Concomitant]
     Active Substance: ACETAMINOPHEN
     Indication: Ill-defined disorder
     Dosage: 2 DOSAGE FORM, FOUR TIMES/DAY
     Route: 065
     Dates: start: 20220516

REACTIONS (2)
  - Dizziness [Unknown]
  - Nausea [Unknown]

NARRATIVE: CASE EVENT DATE: 20240606
